FAERS Safety Report 9665678 (Version 1)
Quarter: 2013Q4

REPORT INFORMATION
  Report Type: Spontaneous
  Country: US (occurrence: US)
  Receive Date: 20131104
  Receipt Date: 20131104
  Transmission Date: 20140711
  Serious: Yes (Hospitalization)
  Sender: FDA-Public Use
  Company Number: PHEH2013US022782

PATIENT
  Sex: Female
  Weight: 59.86 kg

DRUGS (3)
  1. FORADIL [Suspect]
     Dates: start: 20130810
  2. BUDESONIDE [Suspect]
     Dates: start: 20130810
  3. BUDESONIDE [Suspect]
     Dosage: UNK
     Dates: end: 20130811

REACTIONS (4)
  - Erythema [Recovered/Resolved]
  - Wheezing [Recovered/Resolved]
  - Bronchospasm [Recovered/Resolved]
  - Hypersensitivity [Recovered/Resolved]
